FAERS Safety Report 14677178 (Version 1)
Quarter: 2018Q1

REPORT INFORMATION
  Report Type: Spontaneous
  Country: US (occurrence: US)
  Receive Date: 20180323
  Receipt Date: 20180323
  Transmission Date: 20180509
  Serious: No
  Sender: FDA-Public Use
  Company Number: None

PATIENT
  Age: 57 Year
  Sex: Female
  Weight: 82.8 kg

DRUGS (1)
  1. VICTOZA [Suspect]
     Active Substance: LIRAGLUTIDE
     Indication: TYPE 2 DIABETES MELLITUS
     Dosage: ?          QUANTITY:3 PENS;OTHER ROUTE:INJECTION?
     Dates: start: 20180221, end: 20180321

REACTIONS (5)
  - Nausea [None]
  - Diarrhoea [None]
  - Gastrooesophageal reflux disease [None]
  - Tremor [None]
  - Chills [None]

NARRATIVE: CASE EVENT DATE: 20180319
